FAERS Safety Report 8459876-3 (Version None)
Quarter: 2012Q2

REPORT INFORMATION
  Report Type: 
  Country: None (occurrence: None)
  Receive Date: 20120622
  Receipt Date: 20120618
  Transmission Date: 20120825
  Serious: Yes (Hospitalization, Other)
  Sender: FDA-Public Use
  Company Number: PHEH2012US011099

PATIENT
  Age: 54 Year
  Sex: Female

DRUGS (2)
  1. AVONEX [Suspect]
     Indication: MULTIPLE SCLEROSIS
     Dosage: 30 UG, UNK
     Route: 030
     Dates: start: 20120201
  2. RITALIN [Suspect]
     Dosage: UNK UKN, UNK

REACTIONS (4)
  - HAEMORRHAGIC STROKE [None]
  - CEREBROVASCULAR ACCIDENT [None]
  - HYPERTENSION [None]
  - BASAL GANGLIA HAEMORRHAGE [None]
